FAERS Safety Report 20380741 (Version 4)
Quarter: 2022Q1

REPORT INFORMATION
  Report Type: Spontaneous
  Country: CA (occurrence: CA)
  Receive Date: 20220127
  Receipt Date: 20220316
  Transmission Date: 20220423
  Serious: Yes (Hospitalization)
  Sender: FDA-Public Use
  Company Number: CA-CELLTRION INC.-2022CA000854

PATIENT

DRUGS (4)
  1. INFLECTRA [Suspect]
     Active Substance: INFLIXIMAB-DYYB
     Indication: Crohn^s disease
     Dosage: 10 MG/KG, WEEK 0,2,6 THEN Q8 WEEKS - FIRST DOSE AT HOSPITAL
     Route: 042
     Dates: start: 20220102
  2. INFLECTRA [Suspect]
     Active Substance: INFLIXIMAB-DYYB
     Dosage: 10 MG/KG, WEEK 0,2,6 THEN Q8 WEEKS - FIRST DOSE AT HOSPITAL
     Route: 042
     Dates: start: 20220129
  3. INFLECTRA [Suspect]
     Active Substance: INFLIXIMAB-DYYB
     Dosage: 10 MG/KG, WEEK 0,2,6 THEN Q8 WEEKS - FIRST DOSE AT HOSPITAL
     Route: 042
     Dates: start: 20220210
  4. INFLECTRA [Suspect]
     Active Substance: INFLIXIMAB-DYYB
     Dosage: 10 MG/KG, WEEK 0,2,6 THEN Q8 WEEKS - FIRST DOSE AT HOSPITAL
     Route: 042
     Dates: start: 20220303

REACTIONS (3)
  - Abdominal abscess [Not Recovered/Not Resolved]
  - Off label use [Unknown]
  - Off label use [Unknown]

NARRATIVE: CASE EVENT DATE: 20220102
